FAERS Safety Report 4978955-6 (Version None)
Quarter: 2006Q2

REPORT INFORMATION
  Report Type: 
  Country: None (occurrence: None)
  Receive Date: 20060417
  Receipt Date: 20060403
  Transmission Date: 20061013
  Serious: Yes (Other)
  Sender: FDA-Public Use
  Company Number: 2006046843

PATIENT
  Age: 60 Year
  Sex: Male

DRUGS (4)
  1. CELEBREX [Suspect]
     Indication: OSTEOARTHRITIS
     Dosage: ORAL
     Route: 048
  2. WARFARIN SODIUM [Concomitant]
  3. TAMBOCOR [Concomitant]
  4. AMIODARONE HCL [Concomitant]

REACTIONS (1)
  - ARRHYTHMIA [None]
